FAERS Safety Report 9530140 (Version 1)
Quarter: 2013Q3

REPORT INFORMATION
  Report Type: Spontaneous
  Country: RU (occurrence: RU)
  Receive Date: 20130917
  Receipt Date: 20130917
  Transmission Date: 20140515
  Serious: Yes (Other)
  Sender: FDA-Public Use
  Company Number: RU-WATSON-2013-16018

PATIENT
  Age: 64 Year
  Sex: Female

DRUGS (3)
  1. IMATINIB (UNKNOWN) [Suspect]
     Indication: CHRONIC MYELOID LEUKAEMIA
     Dosage: 400 MG, DAILY
     Route: 065
     Dates: start: 20090105
  2. DEXAMETHASONE (UNKNOWN) [Suspect]
     Indication: PLASMA CELL MYELOMA
     Dosage: 20 MG, ON DAYS 1-2, 4-5, 8-9 AND 11-12 OF VD CYCLE
     Route: 065
  3. VELCADE [Suspect]
     Indication: PLASMA CELL MYELOMA
     Dosage: 1.3 MG/M2, DAYS 1, 4, 8 AND 11 OF THE 21 DAY VD CYCLE
     Route: 042

REACTIONS (2)
  - Toxic neuropathy [Recovering/Resolving]
  - Anaemia [Recovered/Resolved]
